FAERS Safety Report 10428429 (Version 4)
Quarter: 2014Q4

REPORT INFORMATION
  Report Type: Spontaneous
  Country: JP (occurrence: JP)
  Receive Date: 20140903
  Receipt Date: 20141216
  Transmission Date: 20150528
  Serious: Yes (Hospitalization, Other)
  Sender: FDA-Public Use
  Company Number: JP-GLAXOSMITHKLINE-B1028373A

PATIENT
  Age: 20 Year
  Sex: Female

DRUGS (1)
  1. LAMOTRIGINE. [Suspect]
     Active Substance: LAMOTRIGINE
     Route: 048

REACTIONS (11)
  - Generalised erythema [Recovering/Resolving]
  - Hyperthermia [Unknown]
  - Platelet count decreased [Recovering/Resolving]
  - Lymphocyte morphology abnormal [Unknown]
  - Lymphadenopathy [Recovering/Resolving]
  - Pyrexia [Recovering/Resolving]
  - Pancytopenia [Recovering/Resolving]
  - White blood cell count decreased [Recovering/Resolving]
  - Acute respiratory failure [Recovering/Resolving]
  - Drug reaction with eosinophilia and systemic symptoms [Recovering/Resolving]
  - Rash generalised [Recovering/Resolving]
